FAERS Safety Report 10152844 (Version 4)
Quarter: 2014Q4

REPORT INFORMATION
  Report Type: Report from Study
  Country: US (occurrence: US)
  Receive Date: 20140505
  Receipt Date: 20141117
  Transmission Date: 20150528
  Serious: Yes (Other)
  Sender: FDA-Public Use
  Company Number: US-SA-2014SA003259

PATIENT
  Age: 45 Year
  Sex: Female

DRUGS (1)
  1. AUBAGIO [Suspect]
     Active Substance: TERIFLUNOMIDE
     Indication: MULTIPLE SCLEROSIS
     Route: 048
     Dates: start: 20140724

REACTIONS (5)
  - Memory impairment [Unknown]
  - Pyrexia [Not Recovered/Not Resolved]
  - Benign breast neoplasm [Unknown]
  - Hand fracture [Unknown]
  - Toothache [Not Recovered/Not Resolved]
